FAERS Safety Report 7596948-X (Version None)
Quarter: 2011Q3

REPORT INFORMATION
  Report Type: 
  Country: None (occurrence: None)
  Receive Date: 20110708
  Receipt Date: 20110629
  Transmission Date: 20111222
  Serious: Yes (Other)
  Sender: FDA-Public Use
  Company Number: US-JNJFOC-20110700190

PATIENT
  Sex: Male
  Weight: 78.47 kg

DRUGS (1)
  1. ELMIRON [Suspect]
     Indication: CYSTITIS INTERSTITIAL
     Route: 048
     Dates: start: 19960101

REACTIONS (7)
  - INSOMNIA [None]
  - PROSTATOMEGALY [None]
  - ANXIETY [None]
  - THERAPEUTIC RESPONSE DECREASED [None]
  - HIGH DENSITY LIPOPROTEIN DECREASED [None]
  - DEPRESSION [None]
  - BLOOD CHOLESTEROL INCREASED [None]
